FAERS Safety Report 20738134 (Version 1)
Quarter: 2022Q2

REPORT INFORMATION
  Report Type: Spontaneous
  Country: US (occurrence: US)
  Receive Date: 20220422
  Receipt Date: 20220422
  Transmission Date: 20220721
  Serious: Yes (Hospitalization, Other)
  Sender: FDA-Public Use
  Company Number: US-BRISTOL-MYERS SQUIBB COMPANY-2022-022509

PATIENT
  Age: 81 Year
  Sex: Male
  Weight: 93.44 kg

DRUGS (1)
  1. THALOMID [Suspect]
     Active Substance: THALIDOMIDE
     Indication: Myelofibrosis
     Dosage: ONCE DAILY
     Route: 048
     Dates: start: 20201028

REACTIONS (1)
  - Pulmonary oedema [Unknown]
